FAERS Safety Report 14061912 (Version 1)
Quarter: 2017Q4

REPORT INFORMATION
  Report Type: Spontaneous
  Country: US (occurrence: US)
  Receive Date: 20171009
  Receipt Date: 20171009
  Transmission Date: 20180321
  Serious: Yes (Other)
  Sender: FDA-Public Use
  Company Number: US-009507513-1710USA001420

PATIENT
  Age: 49 Year
  Sex: Female

DRUGS (3)
  1. REBETOL [Suspect]
     Active Substance: RIBAVIRIN
     Indication: CHRONIC HEPATITIS C
     Dosage: 1200 MG, QD,IN DIVIDED DOSES FOR 48 WEEKS
     Dates: start: 20130128
  2. PEGINTERFERON ALFA-2A. [Suspect]
     Active Substance: PEGINTERFERON ALFA-2A
     Indication: CHRONIC HEPATITIS C
     Dosage: 180 MICROGRAM, QW FOR 48 WEEKS
     Dates: start: 20130128
  3. VICTRELIS [Suspect]
     Active Substance: BOCEPREVIR
     Indication: CHRONIC HEPATITIS C
     Dosage: UNK, FOR 48 WEEKS LENGTH THERAPY
     Dates: start: 20130225

REACTIONS (3)
  - Myocardial infarction [Unknown]
  - Heart rate irregular [Unknown]
  - Dyspepsia [Unknown]
